FAERS Safety Report 24119913 (Version 2)
Quarter: 2024Q3

REPORT INFORMATION
  Report Type: Report from Study
  Country: ES (occurrence: ES)
  Receive Date: 20240722
  Receipt Date: 20240725
  Transmission Date: 20241017
  Serious: Yes (Hospitalization)
  Sender: PFIZER
  Company Number: ES-PFIZER INC-PV202400093538

PATIENT
  Age: 13 Year
  Sex: Female
  Weight: 33.2 kg

DRUGS (7)
  1. CISPLATIN [Suspect]
     Active Substance: CISPLATIN
     Dosage: EVERY 48H
     Dates: start: 20240129, end: 20240703
  2. DOXORUBICIN HYDROCHLORIDE [Suspect]
     Active Substance: DOXORUBICIN HYDROCHLORIDE
     Dosage: EVERY 48H
     Dates: start: 20240129, end: 20240705
  3. ONDANSETRON [Concomitant]
     Active Substance: ONDANSETRON
     Indication: Antiemetic supportive care
     Dosage: UNK
     Route: 042
     Dates: start: 20240701, end: 20240705
  4. DEXAMETHASONE [Concomitant]
     Active Substance: DEXAMETHASONE
     Indication: Antiemetic supportive care
     Dosage: UNK
     Route: 042
     Dates: start: 20240701, end: 20240705
  5. APREPITANT [Concomitant]
     Active Substance: APREPITANT
     Indication: Antiemetic supportive care
     Dosage: UNK
     Route: 048
     Dates: start: 20240701, end: 20240704
  6. SULFAMETHOXAZOLE\TRIMETHOPRIM [Concomitant]
     Active Substance: SULFAMETHOXAZOLE\TRIMETHOPRIM
     Indication: Prophylaxis
     Dosage: UNK
     Route: 048
     Dates: start: 20240129
  7. FILGRASTIM [Concomitant]
     Active Substance: FILGRASTIM
     Indication: Neutropenia
     Dosage: UNK
     Route: 058
     Dates: start: 20240707, end: 20240710

REACTIONS (2)
  - Febrile neutropenia [Recovered/Resolved]
  - COVID-19 [Recovered/Resolved]

NARRATIVE: CASE EVENT DATE: 20240712
